FAERS Safety Report 13965742 (Version 7)
Quarter: 2019Q2

REPORT INFORMATION
  Report Type: Report from Study
  Country: US (occurrence: US)
  Receive Date: 20170913
  Receipt Date: 20190621
  Transmission Date: 20190711
  Serious: Yes (Hospitalization)
  Sender: FDA-Public Use
  Company Number: US-ACTELION-A-NJ2017-159373

PATIENT
  Age: 49 Year
  Sex: Male
  Weight: 82.99 kg

DRUGS (6)
  1. OPSUMIT [Suspect]
     Active Substance: MACITENTAN
     Indication: PULMONARY ARTERIAL HYPERTENSION
     Dosage: 10 MG, QD
     Route: 048
  2. VELETRI [Suspect]
     Active Substance: EPOPROSTENOL
     Indication: PULMONARY ARTERIAL HYPERTENSION
     Dosage: 25 NG/KG, PER MIN
     Route: 042
  3. ELIQUIS [Concomitant]
     Active Substance: APIXABAN
  4. WARFARIN [Concomitant]
     Active Substance: WARFARIN
  5. ADCIRCA [Concomitant]
     Active Substance: TADALAFIL
  6. VELETRI [Suspect]
     Active Substance: EPOPROSTENOL
     Dosage: 31 NG/KG, PER MIN
     Route: 042

REACTIONS (14)
  - Cardiac flutter [Unknown]
  - Bundle branch block left [Unknown]
  - Device alarm issue [Unknown]
  - Heart rate increased [Unknown]
  - Dyspepsia [Unknown]
  - Weight increased [Recovering/Resolving]
  - Presyncope [Unknown]
  - Nervousness [Unknown]
  - Blood pressure abnormal [Unknown]
  - Diarrhoea [Not Recovered/Not Resolved]
  - Pneumonia [Unknown]
  - Oedema peripheral [Recovering/Resolving]
  - Hypertension [Unknown]
  - Dyspnoea [Unknown]

NARRATIVE: CASE EVENT DATE: 20170902
